FAERS Safety Report 5840947-2 (Version None)
Quarter: 2008Q3

REPORT INFORMATION
  Report Type: 
  Country: None (occurrence: None)
  Receive Date: 20080811
  Receipt Date: 20080730
  Transmission Date: 20090109
  Serious: Yes (Other)
  Sender: FDA-Public Use
  Company Number: US-PFIZER INC-2008064428

PATIENT
  Sex: Female
  Weight: 79.8 kg

DRUGS (4)
  1. CHANTIX [Suspect]
     Indication: SMOKING CESSATION THERAPY
     Dates: start: 20080701, end: 20080727
  2. HERBAL PREPARATION INGREDIENTS UNKNOWN [Concomitant]
  3. GENERAL NUTRIENTS/MINERALS/VITAMINS [Concomitant]
  4. FISH OIL [Concomitant]

REACTIONS (9)
  - ABNORMAL DREAMS [None]
  - AGITATION [None]
  - FATIGUE [None]
  - HEADACHE [None]
  - ILL-DEFINED DISORDER [None]
  - IRRITABILITY [None]
  - NAUSEA [None]
  - SOMNOLENCE [None]
  - SPINAL CORD COMPRESSION [None]
